FAERS Safety Report 6524623-9 (Version None)
Quarter: 2010Q1

REPORT INFORMATION
  Report Type: 
  Country: None (occurrence: None)
  Receive Date: 20100104
  Receipt Date: 20091228
  Transmission Date: 20100710
  Serious: Yes (Death, Disabling)
  Sender: FDA-Public Use
  Company Number: PHHY2009NO59018

PATIENT
  Sex: Male

DRUGS (5)
  1. ZOMETA [Suspect]
     Indication: RENAL CANCER
     Route: 051
     Dates: start: 20041028, end: 20060704
  2. ZANIDIP [Concomitant]
  3. SUTENT [Concomitant]
  4. EMCONCOR [Concomitant]
  5. SIMVASTATIN [Concomitant]

REACTIONS (5)
  - BONE DISORDER [None]
  - DEATH [None]
  - IMPAIRED HEALING [None]
  - OSTEONECROSIS [None]
  - TOOTH EXTRACTION [None]
